FAERS Safety Report 24618874 (Version 1)
Quarter: 2024Q4

REPORT INFORMATION
  Report Type: Spontaneous
  Country: FI (occurrence: FI)
  Receive Date: 20241114
  Receipt Date: 20241114
  Transmission Date: 20250115
  Serious: Yes (Disabling)
  Sender: PFIZER
  Company Number: None

PATIENT
  Age: 43 Year
  Sex: Female

DRUGS (6)
  1. RIMEGEPANT [Suspect]
     Active Substance: RIMEGEPANT
     Indication: Migraine
     Dosage: AS NECESSARY AT MOST 1 TABLET/DAY
     Route: 048
     Dates: start: 20240801
  2. FLUTICASONE FUROATE\VILANTEROL TRIFENATATE [Concomitant]
     Active Substance: FLUTICASONE FUROATE\VILANTEROL TRIFENATATE
     Indication: Asthma
     Dosage: 1 DF, 1X/DAY, 1 INHALATION DAILY
     Route: 055
     Dates: start: 2014
  3. AJOVY [Concomitant]
     Active Substance: FREMANEZUMAB-VFRM
     Indication: Migraine
     Dosage: 225 MG, 1 INJECTION EVERY 4 WEEKS
     Route: 058
     Dates: start: 20240401
  4. DOXEPIN [Concomitant]
     Active Substance: DOXEPIN
     Indication: Insomnia
     Dosage: 2.5 MG, 1X/DAY, 1 TABLET IN THE EVENING
     Route: 048
     Dates: start: 2022
  5. DESLORATADIN STADA [Concomitant]
     Indication: Hypersensitivity
     Dosage: 5 MG, 1X/DAY, 1 TABLET IN THE EVENING
     Route: 048
     Dates: start: 2010
  6. MELATONIN [Concomitant]
     Active Substance: MELATONIN
     Indication: Insomnia
     Dosage: 2.5 MG, 1X/DAY, 1 TABLET IN THE EVENING
     Route: 048
     Dates: start: 2022

REACTIONS (3)
  - Insomnia [Recovering/Resolving]
  - Anxiety [Recovering/Resolving]
  - Depression [Recovering/Resolving]

NARRATIVE: CASE EVENT DATE: 20240803
